FAERS Safety Report 19651800 (Version 1)
Quarter: 2021Q3

REPORT INFORMATION
  Report Type: Spontaneous
  Country: US (occurrence: US)
  Receive Date: 20210803
  Receipt Date: 20210803
  Transmission Date: 20211014
  Serious: Yes (Other)
  Sender: FDA-Public Use
  Company Number: None

PATIENT
  Age: 62 Year
  Sex: Female

DRUGS (11)
  1. FLUOROURACIL. [Concomitant]
     Active Substance: FLUOROURACIL
     Dates: start: 20210726
  2. DEXAMETHASONE IV [Concomitant]
     Active Substance: DEXAMETHASONE
     Dates: start: 20210726
  3. ATROPINE. [Concomitant]
     Active Substance: ATROPINE
     Dates: start: 20210726
  4. DIPHENHYDRAMINE IV [Concomitant]
     Dates: start: 20210726
  5. OXALIPLATIN. [Concomitant]
     Active Substance: OXALIPLATIN
     Dates: start: 20210726
  6. LEUCOVORIN. [Concomitant]
     Active Substance: LEUCOVORIN
     Dates: start: 20210726
  7. IRINOTECAN [Suspect]
     Active Substance: IRINOTECAN
     Indication: INTESTINAL ADENOCARCINOMA
     Dosage: ?          OTHER FREQUENCY:Q14D;?
     Route: 042
     Dates: start: 20210726
  8. FOSAPREITANT (EMEND) [Concomitant]
     Dates: start: 20210726
  9. PALONOSETRON (ALOXI) [Concomitant]
     Dates: start: 20210726
  10. HYDROCORTISONE. [Concomitant]
     Active Substance: HYDROCORTISONE
     Dates: start: 20210726
  11. FAMOTIDINE IVPB [Concomitant]
     Dates: start: 20210726

REACTIONS (5)
  - Infusion related reaction [None]
  - Muscle twitching [None]
  - Dizziness [None]
  - Oropharyngeal discomfort [None]
  - Muscular weakness [None]

NARRATIVE: CASE EVENT DATE: 20210726
